FAERS Safety Report 16862746 (Version 1)
Quarter: 2019Q3

REPORT INFORMATION
  Report Type: Report from Study
  Country: NL (occurrence: NL)
  Receive Date: 20190927
  Receipt Date: 20190927
  Transmission Date: 20191005
  Serious: Yes (Hospitalization)
  Sender: FDA-Public Use
  Company Number: NL-MYLANLABS-2019M1089604

PATIENT

DRUGS (4)
  1. BEVACIZUMAB. [Suspect]
     Active Substance: BEVACIZUMAB
     Indication: COLORECTAL CANCER
     Dosage: 5 MILLIGRAM/KILOGRAM, BIWEEKLY
     Route: 042
     Dates: start: 20181029, end: 20181126
  2. OXALIPLATIN. [Suspect]
     Active Substance: OXALIPLATIN
     Indication: COLORECTAL CANCER
     Dosage: 85 MILLIGRAM/SQ. METER, BIWEEKLY
     Route: 042
     Dates: start: 20181029, end: 20181126
  3. LEUCOVORIN                         /00566701/ [Suspect]
     Active Substance: LEUCOVORIN
     Indication: COLORECTAL CANCER
     Dosage: 400 MILLIGRAM/SQ. METER, BIWEEKLY
     Route: 042
     Dates: start: 20181029, end: 20181126
  4. 5-FU                               /00098801/ [Suspect]
     Active Substance: FLUOROURACIL
     Indication: COLORECTAL CANCER
     Dosage: WITHIN 4 MINUTE, ALL ON DAY 1, FOLLOWED BY CONTINUOUS INFUSION OF 5-FLUOROURACIL 2400 MG/M2 IN 46 HO
     Route: 040
     Dates: start: 20181029

REACTIONS (2)
  - Embolism [Recovering/Resolving]
  - Febrile neutropenia [Recovered/Resolved]

NARRATIVE: CASE EVENT DATE: 20181209
